FAERS Safety Report 22344624 (Version 1)
Quarter: 2023Q2

REPORT INFORMATION
  Report Type: Spontaneous
  Country: US (occurrence: None)
  Receive Date: 20230518
  Receipt Date: 20230518
  Transmission Date: 20230722
  Serious: No
  Sender: FDA-Public Use
  Company Number: None

PATIENT
  Age: 90 Year
  Sex: Male
  Weight: 77.56 kg

DRUGS (6)
  1. BROMFENAC\MOXIFLOXACIN\PREDNISONE [Suspect]
     Active Substance: BROMFENAC\MOXIFLOXACIN\PREDNISONE
  2. GLUCOSE MONITOR [Concomitant]
  3. VITAMIN B12 [Concomitant]
     Active Substance: CYANOCOBALAMIN
  4. VITAMIN D3 [Concomitant]
     Active Substance: CHOLECALCIFEROL
  5. MAGNESIUM [Concomitant]
     Active Substance: MAGNESIUM
  6. COLOACE [Concomitant]

REACTIONS (1)
  - Glaucoma [None]
